FAERS Safety Report 9944189 (Version 1)
Quarter: 2014Q1

REPORT INFORMATION
  Report Type: Report from Study
  Country: US (occurrence: US)
  Receive Date: 20140303
  Receipt Date: 20140303
  Transmission Date: 20141002
  Serious: No
  Sender: FDA-Public Use
  Company Number: US-ABBVIE-13P-163-1055787-00

PATIENT
  Sex: Female

DRUGS (3)
  1. HUMIRA [Suspect]
     Indication: PSORIASIS
     Dosage: LOADING DOSE ON DAY 1
     Dates: start: 201302
  2. HUMIRA [Suspect]
  3. HUMIRA [Suspect]

REACTIONS (1)
  - Abdominal discomfort [Unknown]
